FAERS Safety Report 9470929 (Version 1)
Quarter: 2013Q3

REPORT INFORMATION
  Report Type: Report from Study
  Country: IT (occurrence: CA)
  Receive Date: 20130822
  Receipt Date: 20130822
  Transmission Date: 20140515
  Serious: Yes (Other)
  Sender: FDA-Public Use
  Company Number: IT-UCBSA-095421

PATIENT
  Age: 57 Year
  Sex: Female
  Weight: 81.8 kg

DRUGS (2)
  1. CIMZIA [Suspect]
     Indication: RHEUMATOID ARTHRITIS
     Route: 058
     Dates: start: 20110702
  2. CIMZIA [Suspect]
     Indication: RHEUMATOID ARTHRITIS
     Dosage: 3 TIMES
     Route: 058
     Dates: start: 20110521, end: 20110618

REACTIONS (2)
  - Angina pectoris [Recovered/Resolved]
  - Blood pressure increased [Recovered/Resolved]
